FAERS Safety Report 7836340-3 (Version None)
Quarter: 2011Q4

REPORT INFORMATION
  Report Type: 
  Country: None (occurrence: None)
  Receive Date: 20111024
  Receipt Date: 20110215
  Transmission Date: 20120403
  Serious: No
  Sender: FDA-Public Use
  Company Number: US-ABBOTT-11P-163-0706394-00

PATIENT
  Sex: Female
  Weight: 64.014 kg

DRUGS (3)
  1. PROGESTERONE [Concomitant]
     Indication: HORMONE THERAPY
  2. LUPRON DEPOT [Suspect]
     Indication: ENDOMETRIOSIS
     Dates: start: 20101001
  3. ABILIFY [Concomitant]
     Indication: AFFECTIVE DISORDER

REACTIONS (1)
  - ARTHRALGIA [None]
